FAERS Safety Report 6866432-7 (Version None)
Quarter: 2010Q3

REPORT INFORMATION
  Report Type: 
  Country: None (occurrence: None)
  Receive Date: 20100722
  Receipt Date: 20100719
  Transmission Date: 20110219
  Serious: Yes (Life-Threatening, Hospitalization)
  Sender: FDA-Public Use
  Company Number: FR-BRISTOL-MYERS SQUIBB COMPANY-15199698

PATIENT
  Age: 81 Year
  Sex: Male

DRUGS (7)
  1. PRAVIGARD PAC (COPACKAGED) [Suspect]
     Indication: ARTERIAL DISORDER
     Route: 048
  2. PREVISCAN [Suspect]
     Indication: ATRIAL FIBRILLATION
     Route: 048
  3. AMIODARONE HCL [Concomitant]
  4. VERAPAMIL [Concomitant]
  5. MEDIATENSYL [Concomitant]
  6. PHYSIOTENS [Concomitant]
  7. MICARDIS [Concomitant]

REACTIONS (2)
  - GASTROINTESTINAL HAEMORRHAGE [None]
  - INTERNATIONAL NORMALISED RATIO INCREASED [None]
